FAERS Safety Report 8980329 (Version 1)
Quarter: 2012Q4

REPORT INFORMATION
  Report Type: 
  Country: CA (occurrence: CA)
  Receive Date: 20121221
  Receipt Date: 20121221
  Transmission Date: 20130627
  Serious: Yes (Hospitalization, Other)
  Sender: FDA-Public Use
  Company Number: CA-ELI_LILLY_AND_COMPANY-CA201212002658

PATIENT
  Age: 64 Year
  Sex: Male

DRUGS (23)
  1. HUMALOG LISPRO [Suspect]
     Dosage: UNK, unknown
     Dates: start: 20120904
  2. LANTUS [Concomitant]
     Dosage: 26 u, qd
     Dates: start: 20120904
  3. NORVASC [Concomitant]
  4. METFORMIN [Concomitant]
     Dosage: 850 mg, tid
     Dates: start: 20110829, end: 20120523
  5. METFORMIN [Concomitant]
     Dosage: 500 mg, bid
     Dates: start: 20120524
  6. AMLODIPINE [Concomitant]
     Dosage: 10 mg, qd
     Dates: start: 20120318
  7. ACETAMINOPHEN [Concomitant]
     Dosage: 325 mg, prn
     Dates: start: 20120209
  8. PLAVIX [Concomitant]
     Dosage: 75 mg, qd
     Dates: start: 20120318
  9. CRESTOR [Concomitant]
     Dosage: 40 mg, qd
     Dates: start: 20120318
  10. RIVASA [Concomitant]
     Dosage: 80 mg, qd
     Dates: start: 20120318
  11. PERINDOPRIL [Concomitant]
     Dosage: 8 mg, qd
     Dates: start: 20101230
  12. INDAPAMIDE [Concomitant]
     Dosage: 4 mg, qd
     Dates: start: 20101230, end: 20120411
  13. INDAPAMIDE [Concomitant]
     Dosage: 2.5 mg, qd
     Dates: start: 20120412
  14. FUROSEMIDE [Concomitant]
     Indication: PULMONARY OEDEMA
     Dosage: 10 mg, qd
     Dates: start: 20120316, end: 20120416
  15. FUROSEMIDE [Concomitant]
     Dosage: 40 mg, qd
     Dates: start: 20120904
  16. FUROSEMIDE [Concomitant]
     Dosage: 20 mg, bid
     Dates: start: 20120918
  17. DOVONEX [Concomitant]
     Dosage: 50 ug, UNK
     Dates: start: 201109
  18. DOVONEX [Concomitant]
     Dosage: 0.06 mg, prn
     Dates: start: 20120904
  19. IMDUR [Concomitant]
     Dosage: 60 mg, qd
     Dates: start: 20120529
  20. NPH INSULIN [Concomitant]
     Dosage: 12 u, qd
     Dates: start: 20120705, end: 20120903
  21. NITRODUR [Concomitant]
     Dosage: 0.4 mg, qd
     Dates: start: 20120318, end: 20120528
  22. ONGLYZA [Concomitant]
     Dosage: UNK
  23. GLYBURIDE [Concomitant]
     Dosage: 2.5 mg, qd
     Dates: start: 20110209, end: 20120524

REACTIONS (7)
  - Pulmonary oedema [Unknown]
  - Pulmonary oedema [Unknown]
  - Generalised oedema [Unknown]
  - Weight increased [Unknown]
  - Fluid retention [Unknown]
  - Oedema peripheral [Unknown]
  - Blood creatinine increased [Unknown]
